FAERS Safety Report 6849776-4 (Version None)
Quarter: 2010Q3

REPORT INFORMATION
  Report Type: 
  Country: None (occurrence: None)
  Receive Date: 20100716
  Receipt Date: 20071029
  Transmission Date: 20110219
  Serious: No
  Sender: FDA-Public Use
  Company Number: US-PFIZER INC-2007084231

PATIENT
  Sex: Female
  Weight: 59 kg

DRUGS (37)
  1. CHANTIX [Suspect]
     Indication: SMOKING CESSATION THERAPY
     Route: 048
     Dates: start: 20070921
  2. TRILEPTAL [Concomitant]
  3. EFFEXOR [Concomitant]
  4. GEODON [Concomitant]
  5. SIMVASTATIN [Concomitant]
  6. FEXOFENADINE [Concomitant]
  7. FEXOFENADINE [Concomitant]
  8. MONTELUKAST SODIUM [Concomitant]
  9. MONTELUKAST SODIUM [Concomitant]
  10. SYMBICORT [Concomitant]
  11. SYMBICORT [Concomitant]
  12. FLONASE [Concomitant]
  13. FLONASE [Concomitant]
     Route: 045
  14. BLACK COHOSH [Concomitant]
  15. BLACK COHOSH [Concomitant]
  16. ZYRTEC [Concomitant]
  17. ZYRTEC [Concomitant]
  18. TRAZODONE HYDROCHLORIDE [Concomitant]
  19. TRAZODONE HYDROCHLORIDE [Concomitant]
  20. LORAZEPAM [Concomitant]
  21. LORAZEPAM [Concomitant]
  22. ALPRAZOLAM [Concomitant]
  23. ALPRAZOLAM [Concomitant]
  24. REQUIP [Concomitant]
  25. REQUIP [Concomitant]
  26. ALBUTEROL [Concomitant]
  27. ALBUTEROL [Concomitant]
  28. BENADRYL [Concomitant]
  29. BENADRYL [Concomitant]
  30. DIGESTIVES, INCL ENZYMES [Concomitant]
  31. DIGESTIVES, INCL ENZYMES [Concomitant]
  32. MULTI-VITAMINS [Concomitant]
  33. MULTI-VITAMINS [Concomitant]
  34. MINERALS NOS [Concomitant]
  35. VITAMIN C [Concomitant]
  36. VITAMIN E [Concomitant]
  37. LOVAZA [Concomitant]

REACTIONS (4)
  - DRUG INEFFECTIVE [None]
  - DRY MOUTH [None]
  - FATIGUE [None]
  - SOMNOLENCE [None]
